FAERS Safety Report 23935421 (Version 6)
Quarter: 2024Q3

REPORT INFORMATION
  Report Type: Spontaneous
  Country: US (occurrence: US)
  Receive Date: 20240604
  Receipt Date: 20240827
  Transmission Date: 20241016
  Serious: No
  Sender: BRISTOL MYERS SQUIBB
  Company Number: US-BRISTOL-MYERS SQUIBB COMPANY-2024-085181

PATIENT
  Age: 91 Year
  Sex: Male

DRUGS (5)
  1. LENALIDOMIDE [Suspect]
     Active Substance: LENALIDOMIDE
     Indication: Plasma cell myeloma
     Route: 048
  2. LENALIDOMIDE [Suspect]
     Active Substance: LENALIDOMIDE
     Route: 048
  3. POMALYST [Suspect]
     Active Substance: POMALIDOMIDE
     Indication: Plasma cell myeloma
     Route: 048
  4. POMALYST [Suspect]
     Active Substance: POMALIDOMIDE
     Route: 048
  5. POMALYST [Suspect]
     Active Substance: POMALIDOMIDE
     Route: 048

REACTIONS (10)
  - Haemoglobin decreased [Recovered/Resolved]
  - Light chain analysis increased [Recovered/Resolved]
  - Asthenia [Recovering/Resolving]
  - Fatigue [Not Recovered/Not Resolved]
  - Confusional state [Recovering/Resolving]
  - Somnolence [Recovering/Resolving]
  - Frustration tolerance decreased [Recovering/Resolving]
  - Pain [Recovering/Resolving]
  - Diarrhoea [Recovering/Resolving]
  - Inappropriate schedule of product administration [Unknown]
